FAERS Safety Report 7116819-2 (Version None)
Quarter: 2010Q4

REPORT INFORMATION
  Report Type: 
  Country: None (occurrence: None)
  Receive Date: 20101122
  Receipt Date: 20101112
  Transmission Date: 20110411
  Serious: Yes (Hospitalization)
  Sender: FDA-Public Use
  Company Number: BR-ROCHE-717693

PATIENT
  Sex: Male
  Weight: 70 kg

DRUGS (3)
  1. BEVACIZUMAB [Suspect]
     Indication: RENAL CELL CARCINOMA
     Route: 042
     Dates: start: 20100608
  2. INTERFERON ALFA [Suspect]
     Indication: RENAL CELL CARCINOMA
     Route: 058
     Dates: start: 20100608
  3. CAPTOPRIL [Concomitant]
     Indication: HYPERTENSION
     Dosage: FREQUENCY: DAILY
     Route: 048
     Dates: start: 20100608

REACTIONS (2)
  - CONFUSIONAL STATE [None]
  - DIZZINESS [None]
